FAERS Safety Report 8995337 (Version 1)
Quarter: 2013Q1

REPORT INFORMATION
  Report Type: Spontaneous
  Country: GB (occurrence: GB)
  Receive Date: 20130102
  Receipt Date: 20130102
  Transmission Date: 20140127
  Serious: Yes (Other)
  Sender: FDA-Public Use
  Company Number: GB-ASTRAZENECA-2012SE95430

PATIENT
  Sex: Male

DRUGS (1)
  1. ATENOLOL [Suspect]
     Route: 048

REACTIONS (1)
  - Blood pressure increased [Recovered/Resolved]
